FAERS Safety Report 18795282 (Version 1)
Quarter: 2021Q1

REPORT INFORMATION
  Report Type: Spontaneous
  Country: HU (occurrence: HU)
  Receive Date: 20210127
  Receipt Date: 20210127
  Transmission Date: 20210419
  Serious: Yes (Hospitalization)
  Sender: FDA-Public Use
  Company Number: HU-ELI_LILLY_AND_COMPANY-HU202101007378

PATIENT
  Age: 47 Year
  Sex: Female

DRUGS (2)
  1. VERZENIOS [Suspect]
     Active Substance: ABEMACICLIB
     Indication: PRODUCT USED FOR UNKNOWN INDICATION
     Dosage: 150 MG, BID
     Route: 065
  2. VERZENIOS [Suspect]
     Active Substance: ABEMACICLIB
     Dosage: 100 MG, BID
     Route: 065

REACTIONS (3)
  - Dehydration [Unknown]
  - Vomiting [Unknown]
  - Condition aggravated [Unknown]
